FAERS Safety Report 8972322 (Version 1)
Quarter: 2012Q4

REPORT INFORMATION
  Report Type: Report from Study
  Country: FR (occurrence: FR)
  Receive Date: 20121218
  Receipt Date: 20121218
  Transmission Date: 20130627
  Serious: Yes (Other)
  Sender: FDA-Public Use
  Company Number: FR-ROCHE-1170760

PATIENT
  Sex: Female
  Weight: 25.5 kg

DRUGS (3)
  1. SOMATROPIN [Suspect]
     Indication: TURNER^S SYNDROME
     Dosage: 10 mg/2 ml
     Route: 058
     Dates: start: 20090225, end: 20110424
  2. SOMATROPIN [Suspect]
     Dosage: 10 mg/2 ml
     Route: 058
     Dates: start: 20110621
  3. LEVOTHYROXINE SODIUM [Concomitant]
     Route: 048
     Dates: start: 20080825, end: 20120619

REACTIONS (1)
  - Appendicitis [Recovered/Resolved]
